FAERS Safety Report 26126343 (Version 1)
Quarter: 2025Q4

REPORT INFORMATION
  Report Type: Spontaneous
  Country: CN (occurrence: CN)
  Receive Date: 20251205
  Receipt Date: 20251205
  Transmission Date: 20260117
  Serious: Yes (Hospitalization, Other)
  Sender: BAXTER
  Company Number: None

PATIENT
  Sex: Male
  Weight: 8 kg

DRUGS (6)
  1. CYCLOPHOSPHAMIDE [Suspect]
     Active Substance: CYCLOPHOSPHAMIDE
     Indication: Neuroblastoma
     Dosage: 0.253 G, QD
     Route: 041
     Dates: start: 20251104, end: 20251104
  2. DEXTROSE [Suspect]
     Active Substance: DEXTROSE MONOHYDRATE
     Dosage: 50 ML, QD (5% INJECTION) WITH CARBOPLATIN
     Route: 041
     Dates: start: 20251104, end: 20251104
  3. SODIUM CHLORIDE [Suspect]
     Active Substance: SODIUM CHLORIDE
     Dosage: 50 ML, QD (0.9% INJECTION) WITH CYCLOPHOSPHAMIDE
     Route: 041
     Dates: start: 20251104, end: 20251104
  4. SODIUM CHLORIDE [Suspect]
     Active Substance: SODIUM CHLORIDE
     Dosage: 50 ML, QD (0.9% INJECTION) WITH DOXORUBICIN HYDROCHLORIDE
     Route: 041
     Dates: start: 20251104, end: 20251104
  5. CARBOPLATIN [Suspect]
     Active Substance: CARBOPLATIN
     Indication: Neuroblastoma
     Dosage: 0.141 G, QD
     Route: 041
     Dates: start: 20251104, end: 20251104
  6. DOXORUBICIN HYDROCHLORIDE [Suspect]
     Active Substance: DOXORUBICIN HYDROCHLORIDE
     Indication: Neuroblastoma
     Dosage: 7.6 MG, QD
     Route: 041
     Dates: start: 20251104, end: 20251104

REACTIONS (3)
  - Myelosuppression [Recovering/Resolving]
  - Mucosal discolouration [Unknown]
  - Pallor [Unknown]

NARRATIVE: CASE EVENT DATE: 20251110
